FAERS Safety Report 5123686-5 (Version None)
Quarter: 2006Q4

REPORT INFORMATION
  Report Type: 
  Country: None (occurrence: None)
  Receive Date: 20061010
  Receipt Date: 20060929
  Transmission Date: 20070319
  Serious: Yes (Hospitalization)
  Sender: FDA-Public Use
  Company Number: 2006AP04615

PATIENT
  Age: 68 Year
  Sex: Male
  Weight: 65 kg

DRUGS (10)
  1. DIPRIVAN [Suspect]
     Indication: INDUCTION OF ANAESTHESIA
     Route: 042
  2. DIPRIVAN [Suspect]
     Dosage: 5-6 MG/KG/HR
     Route: 065
  3. DIPRIVAN [Suspect]
     Route: 065
  4. ANAPEINE [Suspect]
     Indication: EPIDURAL ANAESTHESIA
     Route: 008
  5. ATROPINE SULPHATE [Concomitant]
     Indication: PREMEDICATION
     Route: 030
  6. HYDROXYZINE HYDROCHLORIDE [Concomitant]
     Indication: PREMEDICATION
     Route: 030
  7. VECURONIUM BROMIDE [Concomitant]
     Indication: INDUCTION OF ANAESTHESIA
     Route: 065
  8. ACETATE [Concomitant]
     Route: 041
  9. MIDAZOLAM HYDROCHLORIDE [Concomitant]
     Route: 042
  10. OXYGEN [Concomitant]
     Route: 055

REACTIONS (4)
  - BLOOD CREATINE PHOSPHOKINASE INCREASED [None]
  - HYPERTHERMIA MALIGNANT [None]
  - MYOGLOBINURIA [None]
  - POST PROCEDURAL COMPLICATION [None]
